FAERS Safety Report 16579662 (Version 1)
Quarter: 2019Q3

REPORT INFORMATION
  Report Type: Report from Study
  Country: US (occurrence: US)
  Receive Date: 20190716
  Receipt Date: 20190716
  Transmission Date: 20191004
  Serious: Yes (Death)
  Sender: FDA-Public Use
  Company Number: US-BAYER-2019-130873

PATIENT

DRUGS (2)
  1. ASPIRIN 81 [Suspect]
     Active Substance: ASPIRIN
     Indication: ANTICOAGULANT THERAPY
     Dosage: 81 MG
  2. WARFARIN [Interacting]
     Active Substance: WARFARIN
     Indication: ANTICOAGULANT THERAPY
     Dosage: UNK

REACTIONS (2)
  - Labelled drug-drug interaction medication error [Fatal]
  - Cerebral haemorrhage [Fatal]
